FAERS Safety Report 19236905 (Version 1)
Quarter: 2021Q2

REPORT INFORMATION
  Report Type: Spontaneous
  Country: US (occurrence: US)
  Receive Date: 20210507
  Receipt Date: 20210507
  Transmission Date: 20210717
  Serious: Yes (Other)
  Sender: FDA-Public Use
  Company Number: None

PATIENT
  Age: 63 Year
  Sex: Female
  Weight: 118.35 kg

DRUGS (16)
  1. FLONASE [Concomitant]
     Active Substance: FLUTICASONE PROPIONATE
  2. LYRICA [Concomitant]
     Active Substance: PREGABALIN
  3. EMGALITY [Suspect]
     Active Substance: GALCANEZUMAB-GNLM
     Indication: MIGRAINE PROPHYLAXIS
     Dosage: ?          QUANTITY:1 INJECTION(S);OTHER FREQUENCY:ONCE A MONTH;?
     Route: 058
     Dates: start: 20190906, end: 20200206
  4. SINGULAIR [Concomitant]
     Active Substance: MONTELUKAST SODIUM
  5. TUMS [Concomitant]
     Active Substance: CALCIUM CARBONATE
  6. TRINTELLIX [Concomitant]
     Active Substance: VORTIOXETINE HYDROBROMIDE
  7. SEROQUEL [Concomitant]
     Active Substance: QUETIAPINE FUMARATE
  8. ABILIFY [Concomitant]
     Active Substance: ARIPIPRAZOLE
  9. BYSTOLIC [Concomitant]
     Active Substance: NEBIVOLOL HYDROCHLORIDE
  10. TRIBENZOR [Concomitant]
     Active Substance: AMLODIPINE BESYLATE\HYDROCHLOROTHIAZIDE\OLMESARTAN MEDOXOMIL
  11. ZANTAC [Concomitant]
     Active Substance: RANITIDINE HYDROCHLORIDE
  12. TYLENOL [Concomitant]
     Active Substance: ACETAMINOPHEN
  13. MOTRIN [Concomitant]
     Active Substance: IBUPROFEN
  14. CENTRUM [Concomitant]
     Active Substance: VITAMINS
  15. PRAVASTATIN. [Concomitant]
     Active Substance: PRAVASTATIN
  16. XANAX [Concomitant]
     Active Substance: ALPRAZOLAM

REACTIONS (1)
  - Alopecia [None]

NARRATIVE: CASE EVENT DATE: 20200206
